FAERS Safety Report 8227968-X (Version None)
Quarter: 2012Q1

REPORT INFORMATION
  Report Type: 
  Country: None (occurrence: None)
  Receive Date: 20120322
  Receipt Date: 20120315
  Transmission Date: 20120608
  Serious: Yes (Other)
  Sender: FDA-Public Use
  Company Number: PHHY2012GB022909

PATIENT
  Age: 62 Year
  Sex: Male
  Weight: 96 kg

DRUGS (5)
  1. ALBUTEROL [Concomitant]
     Dates: start: 20111123, end: 20111221
  2. RAMIPRIL [Suspect]
     Dates: start: 20120229
  3. AMLODIPINE [Concomitant]
     Dates: start: 20111202
  4. BENDROFLUMETHIAZIDE [Concomitant]
     Dates: start: 20111202
  5. SIMVASTATIN [Concomitant]
     Dates: start: 20111202

REACTIONS (3)
  - WHEEZING [None]
  - DYSPNOEA [None]
  - COUGH [None]
